FAERS Safety Report 21313291 (Version 1)
Quarter: 2022Q3

REPORT INFORMATION
  Report Type: Spontaneous
  Country: DE (occurrence: None)
  Receive Date: 20220909
  Receipt Date: 20220909
  Transmission Date: 20221026
  Serious: Yes (Life-Threatening, Hospitalization, Other)
  Sender: FDA-Public Use
  Company Number: 2022A304182

PATIENT
  Age: 61 Year
  Sex: Male
  Weight: 105 kg

DRUGS (10)
  1. DAPAGLIFLOZIN [Suspect]
     Active Substance: DAPAGLIFLOZIN
     Indication: Type 2 diabetes mellitus
     Route: 048
     Dates: start: 2015
  2. METFORMIN [Concomitant]
     Active Substance: METFORMIN HYDROCHLORIDE
     Dosage: 1-0-0-1
     Route: 065
  3. INSULIN LISPRO [Concomitant]
     Active Substance: INSULIN LISPRO
     Dosage: INTERMITTENT
     Route: 065
  4. LYRICA [Concomitant]
     Active Substance: PREGABALIN
     Dosage: 1-1-1
     Route: 065
  5. BISOPROLOL [Concomitant]
     Active Substance: BISOPROLOL
     Dosage: 1-0-1
     Route: 065
  6. AMLODIPINE BESYLATE [Concomitant]
     Active Substance: AMLODIPINE BESYLATE
     Dosage: 1-0-1
     Route: 065
  7. TORSEMIDE [Concomitant]
     Active Substance: TORSEMIDE
     Dosage: 1-0-0
     Route: 065
  8. SIMVASTATIN [Concomitant]
     Active Substance: SIMVASTATIN
     Dosage: 1-0-0
     Route: 065
  9. INSULIN HUMAN [Concomitant]
     Active Substance: INSULIN HUMAN
     Dosage: 8-0-16 IE
     Route: 065
  10. RAMIPRIL [Concomitant]
     Active Substance: RAMIPRIL
     Dosage: 1-0-0
     Route: 065

REACTIONS (5)
  - Fournier^s gangrene [Not Recovered/Not Resolved]
  - Scrotal abscess [Not Recovered/Not Resolved]
  - Scrotal swelling [Not Recovered/Not Resolved]
  - Intertrigo [Not Recovered/Not Resolved]
  - Erythema [Not Recovered/Not Resolved]

NARRATIVE: CASE EVENT DATE: 20220601
